FAERS Safety Report 10461900 (Version 1)
Quarter: 2014Q3

REPORT INFORMATION
  Report Type: Spontaneous
  Country: US (occurrence: None)
  Receive Date: 20140916
  Receipt Date: 20140916
  Transmission Date: 20150326
  Serious: Yes (Hospitalization, Other)
  Sender: FDA-Public Use
  Company Number: 2009S1006449

PATIENT
  Age: 70 Year
  Sex: Female
  Weight: 93 kg

DRUGS (5)
  1. LASIX [Concomitant]
     Active Substance: FUROSEMIDE
  2. NORTRIPTYLIN [Concomitant]
     Active Substance: NORTRIPTYLINE
  3. PHOSPHO-SODA [Suspect]
     Active Substance: SODIUM PHOSPHATE, DIBASIC\SODIUM PHOSPHATE, MONOBASIC
     Indication: COLONOSCOPY
     Route: 048
     Dates: start: 20041107
  4. COUMADIN [Concomitant]
     Active Substance: WARFARIN SODIUM
  5. ZOCOR [Concomitant]
     Active Substance: SIMVASTATIN

REACTIONS (17)
  - Dizziness [None]
  - Hypovolaemia [None]
  - Renal failure acute [None]
  - Dehydration [None]
  - Hypomagnesaemia [None]
  - Asthenia [None]
  - Hyperphosphataemia [None]
  - Diarrhoea [None]
  - Anaemia of chronic disease [None]
  - Hyperparathyroidism secondary [None]
  - Nephrocalcinosis [None]
  - Haemodialysis [None]
  - Hypocalcaemia [None]
  - Hypokalaemia [None]
  - Acidosis [None]
  - Renal tubular necrosis [None]
  - Paraesthesia [None]

NARRATIVE: CASE EVENT DATE: 20041109
